FAERS Safety Report 7815917-5 (Version None)
Quarter: 2011Q4

REPORT INFORMATION
  Report Type: 
  Country: None (occurrence: None)
  Receive Date: 20111014
  Receipt Date: 20111013
  Transmission Date: 20120403
  Serious: No
  Sender: FDA-Public Use
  Company Number: US-PFIZER INC-2011245483

PATIENT
  Sex: Male
  Weight: 14.966 kg

DRUGS (1)
  1. CHILDREN'S ADVIL [Suspect]
     Indication: PAIN
     Dosage: TWO TIMES A DAY
     Dates: start: 20111011, end: 20111001

REACTIONS (1)
  - RASH [None]
